FAERS Safety Report 7071062-0 (Version None)
Quarter: 2010Q4

REPORT INFORMATION
  Report Type: 
  Country: None (occurrence: None)
  Receive Date: 20101029
  Receipt Date: 20101026
  Transmission Date: 20110411
  Serious: Yes (Hospitalization, Other)
  Sender: FDA-Public Use
  Company Number: US-PFIZER INC-2010014578

PATIENT
  Sex: Female
  Weight: 33 kg

DRUGS (7)
  1. DILANTIN [Suspect]
     Indication: CONVULSION PROPHYLAXIS
     Dosage: 100 MG, 2X/DAY
     Route: 048
     Dates: start: 20000124, end: 20000205
  2. ACETAMINOPHEN [Concomitant]
     Dosage: 500 MG, AS NEEDED
     Dates: start: 20000122, end: 20000124
  3. CEFAZOLIN [Concomitant]
     Dosage: 500 MG, UNK
     Route: 042
     Dates: start: 20000121, end: 20000124
  4. FOSPHENYTOIN [Concomitant]
     Dosage: 100 MG, 2X/DAY
     Route: 042
     Dates: start: 20000122, end: 20000124
  5. PNEUMOCOCCAL VACCINE [Concomitant]
     Dosage: 0.5 ML, UNK
     Route: 058
     Dates: start: 20000124, end: 20000124
  6. SENOKOT [Concomitant]
     Dosage: 10 ML, 1X/DAY
     Dates: start: 20000124, end: 20000125
  7. TYLENOL W/ CODEINE [Concomitant]
     Dosage: 10 ML, AS NEEDED
     Dates: start: 20000122, end: 20000123

REACTIONS (1)
  - STEVENS-JOHNSON SYNDROME [None]
